APPROVED DRUG PRODUCT: BETAMETHASONE DIPROPIONATE
Active Ingredient: BETAMETHASONE DIPROPIONATE
Strength: EQ 0.05% BASE
Dosage Form/Route: OINTMENT, AUGMENTED;TOPICAL
Application: A076753 | Product #001
Applicant: SUN PHARMA CANADA INC
Approved: Oct 12, 2004 | RLD: No | RS: No | Type: DISCN